FAERS Safety Report 22324505 (Version 1)
Quarter: 2023Q2

REPORT INFORMATION
  Report Type: Spontaneous
  Country: US (occurrence: None)
  Receive Date: 20230514
  Receipt Date: 20230514
  Transmission Date: 20230721
  Serious: Yes (Life-Threatening, Hospitalization, Disabling)
  Sender: FDA-Public Use
  Company Number: None

PATIENT
  Age: 10 Year
  Sex: Male
  Weight: 76.5 kg

DRUGS (7)
  1. PREDNISOLONE SODIUM PHOSPHATE [Suspect]
     Active Substance: PREDNISOLONE SODIUM PHOSPHATE
     Indication: Bronchial hyperreactivity
     Dosage: OTHER QUANTITY : 7.5 MILLILITERS;?FREQUENCY : DAILY;?
     Route: 048
     Dates: start: 20230419, end: 20230421
  2. DEVICE [Concomitant]
     Active Substance: DEVICE
  3. UNSPECIFIED INGREDIENT [Concomitant]
     Active Substance: UNSPECIFIED INGREDIENT
  4. spacer [Concomitant]
  5. ZYRTEC [Concomitant]
     Active Substance: CETIRIZINE HYDROCHLORIDE
  6. FLONASE [Concomitant]
     Active Substance: FLUTICASONE PROPIONATE
  7. ibprofren [Concomitant]

REACTIONS (4)
  - Product colour issue [None]
  - Product taste abnormal [None]
  - Drug ineffective [None]
  - Asthma [None]

NARRATIVE: CASE EVENT DATE: 20230419
